FAERS Safety Report 12245210 (Version 2)
Quarter: 2016Q2

REPORT INFORMATION
  Report Type: Spontaneous
  Country: US (occurrence: US)
  Receive Date: 20160407
  Receipt Date: 20160419
  Transmission Date: 20160815
  Serious: No
  Sender: FDA-Public Use
  Company Number: US-PFIZER INC-2016153508

PATIENT
  Sex: Female

DRUGS (1)
  1. XELJANZ [Suspect]
     Active Substance: TOFACITINIB CITRATE
     Dosage: 5 MG, UNK

REACTIONS (6)
  - Joint stiffness [Unknown]
  - Respiratory symptom [Unknown]
  - Dysphonia [Unknown]
  - Joint swelling [Unknown]
  - Cough [Unknown]
  - Arthralgia [Unknown]
